FAERS Safety Report 7228142-6 (Version None)
Quarter: 2011Q1

REPORT INFORMATION
  Report Type: 
  Country: None (occurrence: None)
  Receive Date: 20110106
  Receipt Date: 20110106
  Transmission Date: 20110831
  Serious: Yes (Other)
  Sender: FDA-Public Use
  Company Number: 1022556-2011-00001

PATIENT
  Age: 45 Year
  Sex: Male

DRUGS (1)
  1. UNISOM [Suspect]
     Indication: INSOMNIA
     Dosage: ORAL
     Route: 048

REACTIONS (2)
  - DRUG INEFFECTIVE [None]
  - TINNITUS [None]
